FAERS Safety Report 9015943 (Version 1)
Quarter: 2013Q1

REPORT INFORMATION
  Report Type: Spontaneous
  Country: US (occurrence: US)
  Receive Date: 20130116
  Receipt Date: 20130116
  Transmission Date: 20140127
  Serious: Yes (Other)
  Sender: FDA-Public Use
  Company Number: US-BAYER-2013-004428

PATIENT
  Age: 60 Year
  Sex: Male
  Weight: 90.7 kg

DRUGS (4)
  1. ALKA-SELTZER PLUS COLD + COUGH [Suspect]
     Indication: NASOPHARYNGITIS
     Dosage: 2 DF, UNK
     Route: 048
     Dates: start: 20130108, end: 20130109
  2. ALKA-SELTZER PLUS COLD + COUGH [Suspect]
     Indication: NASOPHARYNGITIS
     Dosage: TOOK ALL 10 POUCHES WITHIN 15 HOURS
     Dates: start: 20130108
  3. BENICAR [Concomitant]
  4. METOPROLOL [Concomitant]

REACTIONS (4)
  - Pyrexia [None]
  - Dizziness [None]
  - Asthenia [None]
  - Overdose [None]
